FAERS Safety Report 8680125 (Version 3)
Quarter: 2013Q1

REPORT INFORMATION
  Report Type: Report from Study
  Country: CA (occurrence: CA)
  Receive Date: 20120724
  Receipt Date: 20130329
  Transmission Date: 20140127
  Serious: Yes (Hospitalization)
  Sender: FDA-Public Use
  Company Number: CA-JNJFOC-20120707753

PATIENT
  Age: 43 Year
  Sex: Female
  Weight: 78.1 kg

DRUGS (6)
  1. REMICADE [Suspect]
     Indication: CROHN^S DISEASE
     Dosage: WEEK 6 INFUSION
     Route: 042
     Dates: start: 20120531
  2. REMICADE [Suspect]
     Indication: CROHN^S DISEASE
     Route: 042
     Dates: start: 20120419
  3. CODEINE [Concomitant]
     Indication: DIARRHOEA
     Route: 065
  4. VITAMIN B 12 [Concomitant]
     Route: 065
  5. VITAMIN D [Concomitant]
     Route: 065
  6. IRON SUPPLEMENTS [Concomitant]
     Route: 065

REACTIONS (5)
  - Abscess [Recovered/Resolved]
  - Infection [Unknown]
  - Intestinal resection [Recovered/Resolved]
  - Fistula [Recovered/Resolved]
  - Intestinal perforation [Unknown]
